FAERS Safety Report 4710472-0 (Version None)
Quarter: 2005Q3

REPORT INFORMATION
  Report Type: 
  Country: None (occurrence: None)
  Receive Date: 20050711
  Receipt Date: 20050701
  Transmission Date: 20060218
  Serious: Yes (Hospitalization, Other)
  Sender: FDA-Public Use
  Company Number: US-JNJFOC-20050500756

PATIENT
  Age: 62 Year
  Sex: Male
  Weight: 102.06 kg

DRUGS (26)
  1. REGRANEX [Suspect]
     Route: 061
     Dates: start: 20041019
  2. MULTI-VITAMIN [Concomitant]
  3. MULTI-VITAMIN [Concomitant]
  4. MULTI-VITAMIN [Concomitant]
  5. MULTI-VITAMIN [Concomitant]
  6. MULTI-VITAMIN [Concomitant]
  7. MULTI-VITAMIN [Concomitant]
  8. MULTI-VITAMIN [Concomitant]
  9. MULTI-VITAMIN [Concomitant]
  10. ADVIL [Concomitant]
  11. AMMONIUM LACTATE [Concomitant]
  12. BACITRACIN [Concomitant]
  13. POLYMYXIN [Concomitant]
  14. DUODERM DRESSING [Concomitant]
  15. DUODERM DRESSING [Concomitant]
  16. FUROSEMIDE [Concomitant]
     Indication: BLOOD PRESSURE
     Route: 049
  17. GLYBURIDE [Concomitant]
     Route: 049
  18. NPH INSULIN [Concomitant]
     Dosage: EVERY EVENING
     Route: 058
  19. NPH INSULIN [Concomitant]
     Dosage: EVERY MORNING
     Route: 058
  20. METOPROLOL TARTRATE [Concomitant]
     Route: 049
  21. METOPROLOL TARTRATE [Concomitant]
     Indication: BLOOD PRESSURE
     Route: 049
  22. PENTOXIFYLLINE [Concomitant]
     Route: 049
  23. ROSIGLITAZONE MALEATE [Concomitant]
     Route: 049
  24. SILDENAFIL CITRATE [Concomitant]
     Route: 049
  25. SIMVASTATIN [Concomitant]
     Route: 049
  26. SODIUM CHLORIDE [Concomitant]
     Dosage: TWICE DAILY AS NEEDED

REACTIONS (7)
  - ABSCESS LIMB [None]
  - CELLULITIS [None]
  - GANGRENE [None]
  - INCISION SITE HAEMORRHAGE [None]
  - LOCALISED INFECTION [None]
  - NECROTISING FASCIITIS [None]
  - OSTEOMYELITIS ACUTE [None]
